FAERS Safety Report 8258507-5 (Version None)
Quarter: 2012Q2

REPORT INFORMATION
  Report Type: 
  Country: None (occurrence: None)
  Receive Date: 20120404
  Receipt Date: 20120402
  Transmission Date: 20120825
  Serious: Yes (Other)
  Sender: FDA-Public Use
  Company Number: US-PFIZER INC-2012034940

PATIENT
  Sex: Female

DRUGS (6)
  1. HYDROCHLOROTHIAZIDE [Suspect]
     Indication: HYPERTENSION
     Dosage: 25 MG, DAILY
  2. NORVASC [Suspect]
     Indication: HYPERTENSION
     Dosage: UNK
  3. VITAMIN E [Concomitant]
     Dosage: UNK
  4. DETROL LA [Suspect]
     Dosage: UNK
  5. ASCORBIC ACID [Concomitant]
     Dosage: UNK
  6. LEXAPRO [Concomitant]
     Indication: ANXIETY
     Dosage: 10 MG, DAILY

REACTIONS (2)
  - RASH MACULAR [None]
  - CELLULITIS [None]
